FAERS Safety Report 8842161 (Version 1)
Quarter: 2012Q4

REPORT INFORMATION
  Report Type: Spontaneous
  Country: US (occurrence: None)
  Receive Date: 20121015
  Receipt Date: 20121015
  Transmission Date: 20130627
  Serious: Yes (Death)
  Sender: FDA-Public Use
  Company Number: None

PATIENT
  Sex: Female

DRUGS (2)
  1. PEG-INTRON [Suspect]
     Indication: HEPATITIS C
     Route: 058
     Dates: start: 20120224, end: 20120822
  2. PROCRIT [Suspect]
     Indication: ANEMIA
     Dosage: 10,000 units BIW SQ
     Route: 058
     Dates: start: 20120424, end: 20120822

REACTIONS (1)
  - Death [None]
